FAERS Safety Report 8801080 (Version 2)
Quarter: 2015Q1

REPORT INFORMATION
  Report Type: Report from Study
  Country: US (occurrence: US)
  Receive Date: 20120920
  Receipt Date: 20150327
  Transmission Date: 20150721
  Serious: Yes (Death)
  Sender: FDA-Public Use
  Company Number: US-ROCHE-1126294

PATIENT
  Sex: Male

DRUGS (18)
  1. AVASTIN [Suspect]
     Active Substance: BEVACIZUMAB
     Indication: METASTASES TO LIVER
  2. ZOMETA [Concomitant]
     Active Substance: ZOLEDRONIC ACID
     Route: 042
  3. LIPITOR [Concomitant]
     Active Substance: ATORVASTATIN CALCIUM
  4. MAXALT [Concomitant]
     Active Substance: RIZATRIPTAN BENZOATE
  5. COUMADIN [Concomitant]
     Active Substance: WARFARIN SODIUM
  6. ZANAFLEX [Concomitant]
     Active Substance: TIZANIDINE HYDROCHLORIDE
  7. PROCRIT [Concomitant]
     Active Substance: ERYTHROPOIETIN
     Route: 058
  8. PHENERGAN [Concomitant]
     Active Substance: PROMETHAZINE HYDROCHLORIDE
  9. AVASTIN [Suspect]
     Active Substance: BEVACIZUMAB
     Indication: RENAL CANCER
     Route: 042
     Dates: start: 20070529
  10. SENOKOT [Concomitant]
     Active Substance: SENNOSIDES
  11. PROTONIX (OMEPRAZOLE) [Concomitant]
  12. ASPIRIN. [Concomitant]
     Active Substance: ASPIRIN
  13. ZOFRAN [Concomitant]
     Active Substance: ONDANSETRON HYDROCHLORIDE
  14. VICODIN [Concomitant]
     Active Substance: ACETAMINOPHEN\HYDROCODONE BITARTRATE
  15. HEPARIN [Concomitant]
     Active Substance: HEPARIN SODIUM
     Route: 042
  16. OXYCODONE HCL [Concomitant]
     Active Substance: OXYCODONE HYDROCHLORIDE
  17. MOBIC [Concomitant]
     Active Substance: MELOXICAM
  18. BENADRYL [Concomitant]
     Active Substance: DIPHENHYDRAMINE HYDROCHLORIDE

REACTIONS (10)
  - Asthenia [Unknown]
  - Off label use [Unknown]
  - Blood creatinine increased [Unknown]
  - Epistaxis [Unknown]
  - Early satiety [Unknown]
  - Death [Fatal]
  - Nausea [Unknown]
  - Sinusitis [Unknown]
  - Micturition disorder [Unknown]
  - Hepatic pain [Unknown]
